FAERS Safety Report 20230685 (Version 1)
Quarter: 2021Q4

REPORT INFORMATION
  Report Type: Spontaneous
  Country: CN (occurrence: CN)
  Receive Date: 20211227
  Receipt Date: 20211227
  Transmission Date: 20220303
  Serious: Yes (Other)
  Sender: FDA-Public Use
  Company Number: CN-ABBVIE-21K-035-4211906-00

PATIENT
  Age: 52 Year
  Sex: Male

DRUGS (2)
  1. VALPROATE SODIUM [Suspect]
     Active Substance: VALPROATE SODIUM
     Indication: Craniocerebral injury
     Route: 048
     Dates: start: 20180614, end: 20180620
  2. VALPROATE SODIUM [Suspect]
     Active Substance: VALPROATE SODIUM
     Indication: Craniocerebral injury
     Route: 042
     Dates: start: 20180613, end: 20180618

REACTIONS (1)
  - Hepatic function abnormal [Recovering/Resolving]
